FAERS Safety Report 4609193-4 (Version None)
Quarter: 2005Q1

REPORT INFORMATION
  Report Type: 
  Country: None (occurrence: None)
  Receive Date: 20050315
  Receipt Date: 20041108
  Transmission Date: 20050727
  Serious: Yes (Other)
  Sender: FDA-Public Use
  Company Number: DE-MERCK-0411DEU00120

PATIENT
  Age: 61 Year
  Sex: Male

DRUGS (5)
  1. VIOXX [Suspect]
     Indication: ANKYLOSING SPONDYLITIS
     Route: 048
     Dates: start: 20000101, end: 20041001
  2. VIOXX [Suspect]
     Indication: SPONDYLITIS
     Route: 048
     Dates: start: 20000101, end: 20041001
  3. RANITIDINE [Concomitant]
     Route: 065
  4. VASOTEC [Concomitant]
     Route: 065
  5. DICLOFENAC [Concomitant]
     Route: 065
     Dates: start: 19991103

REACTIONS (6)
  - CEREBROVASCULAR ACCIDENT [None]
  - GASTRIC DISORDER [None]
  - GASTRIC ULCER [None]
  - HYPERTENSION [None]
  - MIGRAINE [None]
  - VISUAL DISTURBANCE [None]
